FAERS Safety Report 15603663 (Version 6)
Quarter: 2019Q3

REPORT INFORMATION
  Report Type: Spontaneous
  Country: CN (occurrence: CN)
  Receive Date: 20181109
  Receipt Date: 20190826
  Transmission Date: 20191004
  Serious: Yes (Life-Threatening, Hospitalization)
  Sender: FDA-Public Use
  Company Number: CN-CELGENEUS-CHN-20181102590

PATIENT
  Age: 65 Year
  Sex: Male
  Weight: 53 kg

DRUGS (10)
  1. CARBOPLATIN. [Concomitant]
     Active Substance: CARBOPLATIN
     Dosage: 626 MILLIGRAM
     Route: 041
     Dates: end: 20181106
  2. BGB-A317/TISLELIZUMAB [Concomitant]
     Active Substance: TISLELIZUMAB
     Dosage: 200 MILLIGRAM
     Route: 041
     Dates: end: 20181106
  3. MEROPENEM. [Concomitant]
     Active Substance: MEROPENEM
     Indication: INFECTION
     Route: 065
     Dates: start: 20181029, end: 20181103
  4. ABRAXANE [Suspect]
     Active Substance: PACLITAXEL
     Indication: NON-SMALL CELL LUNG CANCER
     Dosage: 150 MILLIGRAM, Q3WD1,8,15
     Route: 041
     Dates: start: 20181023, end: 20181029
  5. NOVOLIN [Concomitant]
     Active Substance: INSULIN HUMAN
     Indication: BLOOD GLUCOSE DECREASED
     Route: 065
     Dates: start: 20181018
  6. COMPOUND AMINO ACID [Concomitant]
     Active Substance: AMINO ACIDS
     Indication: NUTRITIONAL SUPPLEMENTATION
     Route: 065
     Dates: start: 20181024, end: 20181024
  7. ABRAXANE [Suspect]
     Active Substance: PACLITAXEL
     Dosage: 150 MILLIGRAM
     Route: 041
     Dates: end: 20181106
  8. CARBOPLATIN. [Concomitant]
     Active Substance: CARBOPLATIN
     Indication: NON-SMALL CELL LUNG CANCER
     Dosage: 626 MILLIGRAM
     Route: 041
     Dates: start: 20181023, end: 20181029
  9. BGB-A317/TISLELIZUMAB [Concomitant]
     Active Substance: TISLELIZUMAB
     Indication: NON-SMALL CELL LUNG CANCER
     Dosage: 200 MILLIGRAM, Q3WK
     Route: 041
     Dates: start: 20181023, end: 20181029
  10. PANTOPRAZOLE SODIUM. [Concomitant]
     Active Substance: PANTOPRAZOLE SODIUM
     Indication: PROPHYLAXIS
     Route: 065
     Dates: start: 20181023, end: 20181103

REACTIONS (3)
  - Hypofibrinogenaemia [Recovered/Resolved]
  - Hypoproteinaemia [Recovered/Resolved]
  - Ascites [Recovered/Resolved]

NARRATIVE: CASE EVENT DATE: 20181102
